FAERS Safety Report 9110255 (Version 2)
Quarter: 2013Q1

REPORT INFORMATION
  Report Type: Spontaneous
  Country: US (occurrence: US)
  Receive Date: 20130222
  Receipt Date: 20130301
  Transmission Date: 20140127
  Serious: Yes (Other)
  Sender: FDA-Public Use
  Company Number: US-PERRIGO-13US001602

PATIENT
  Age: 73 None
  Sex: Female
  Weight: 72.56 kg

DRUGS (5)
  1. PSEUDOEPHEDRINE HYDROCHLORIDE  12 HOUR 120 MG 054 [Suspect]
     Indication: SINUS CONGESTION
     Dosage: 120 MG, QD
     Route: 048
     Dates: start: 20130126, end: 20130207
  2. LOXAPINE [Concomitant]
     Indication: INSOMNIA
     Dosage: UNK
     Route: 065
     Dates: start: 2012
  3. LOXAPINE [Concomitant]
     Indication: AFFECTIVE DISORDER
  4. CLOMIPRAMINE [Concomitant]
     Indication: INSOMNIA
     Dosage: UNK
     Route: 065
  5. CLOMIPRAMINE [Concomitant]
     Indication: AFFECTIVE DISORDER

REACTIONS (4)
  - Ageusia [Not Recovered/Not Resolved]
  - Anosmia [Not Recovered/Not Resolved]
  - Inappropriate schedule of drug administration [Unknown]
  - Incorrect drug administration duration [Unknown]
